FAERS Safety Report 5333891-0 (Version None)
Quarter: 2007Q2

REPORT INFORMATION
  Report Type: 
  Country: None (occurrence: None)
  Receive Date: 20070524
  Receipt Date: 20070522
  Transmission Date: 20071010
  Serious: Yes (Life-Threatening, Hospitalization, Other)
  Sender: FDA-Public Use
  Company Number: HQWYE196128FEB07

PATIENT
  Sex: Female
  Weight: 56 kg

DRUGS (8)
  1. MYLOTARG [Suspect]
     Indication: ACUTE MYELOID LEUKAEMIA RECURRENT
     Route: 041
     Dates: start: 20061212, end: 20061212
  2. MYLOTARG [Suspect]
     Route: 041
     Dates: start: 20061226, end: 20061226
  3. BIFIDOBACTERIUM BIFIDUM/LACTOBACILLUS ACIDOPHILUS [Concomitant]
     Indication: PROPHYLAXIS
     Dosage: 3 G DAILY
     Route: 048
     Dates: start: 20061203
  4. TOBRACIN [Concomitant]
     Indication: INFECTION
     Dosage: 240 MG DAILY
     Route: 041
     Dates: start: 20061231, end: 20070105
  5. NITRAZEPAM [Concomitant]
     Indication: INSOMNIA
     Dosage: 5 MG DAILY
     Route: 048
     Dates: start: 20061205, end: 20061218
  6. TIENAM [Concomitant]
     Indication: INFECTION
     Dosage: 2 G DAILY
     Route: 041
     Dates: start: 20061216, end: 20070204
  7. TAKEPRON [Concomitant]
     Indication: PROPHYLAXIS
     Dosage: 15 MG DAILY
     Route: 048
     Dates: start: 20061205
  8. OLOPATADINE HYDROCHLORIDE [Concomitant]
     Indication: PROPHYLAXIS
     Dosage: 10 MG DAILY
     Route: 048
     Dates: start: 20061205

REACTIONS (7)
  - ANAEMIA [None]
  - C-REACTIVE PROTEIN INCREASED [None]
  - FEBRILE NEUTROPENIA [None]
  - NEUTROPHIL COUNT DECREASED [None]
  - PLATELET COUNT DECREASED [None]
  - SYSTEMIC MYCOSIS [None]
  - WHITE BLOOD CELL COUNT DECREASED [None]
